FAERS Safety Report 16114796 (Version 2)
Quarter: 2019Q2

REPORT INFORMATION
  Report Type: Spontaneous
  Country: DE (occurrence: DE)
  Receive Date: 20190325
  Receipt Date: 20190408
  Transmission Date: 20190711
  Serious: Yes (Hospitalization, Other)
  Sender: FDA-Public Use
  Company Number: DE-TAKEDA-2019TUS015383

PATIENT
  Age: 29 Year
  Sex: Female

DRUGS (2)
  1. ENTYVIO [Suspect]
     Active Substance: VEDOLIZUMAB
     Indication: CROHN^S DISEASE
     Dosage: 300 MILLIGRAM
     Route: 042
     Dates: start: 20181025
  2. MESALAZINE [Concomitant]
     Active Substance: MESALAMINE
     Dosage: 1 GRAM, TID

REACTIONS (3)
  - Crohn^s disease [Not Recovered/Not Resolved]
  - Anal fistula [Recovering/Resolving]
  - Anal abscess [Recovered/Resolved]

NARRATIVE: CASE EVENT DATE: 201812
